FAERS Safety Report 8524225-9 (Version None)
Quarter: 2012Q2

REPORT INFORMATION
  Report Type: 
  Country: None (occurrence: None)
  Receive Date: 20120406
  Receipt Date: 20120209
  Transmission Date: 20120825
  Serious: Yes (Hospitalization)
  Sender: FDA-Public Use
  Company Number: US-CYPR-2011-000038

PATIENT
  Sex: Female
  Weight: 58 kg

DRUGS (12)
  1. CLOPIDOGREL [Suspect]
     Indication: ANTIPLATELET THERAPY
     Dosage: 75 MG QD ORAL
     Route: 048
     Dates: start: 20110316, end: 20110616
  2. COREG [Concomitant]
  3. CYPHER STENT [Concomitant]
  4. ALDACTONE [Concomitant]
  5. FIBERCON [Concomitant]
  6. ASPIRIN [Suspect]
     Indication: CORONARY ARTERY DISEASE
     Dosage: 325 MG QD ORAL
     Route: 048
     Dates: start: 20100311
  7. POTASSIUM CHLORIDE [Concomitant]
  8. FOSAMAX [Concomitant]
  9. FISH [Concomitant]
  10. KLONOPIN [Concomitant]
  11. NIASPAN [Concomitant]
  12. NORVASC [Concomitant]
     Indication: THROMBOSIS PROPHYLAXIS

REACTIONS (1)
  - ANGINA PECTORIS [None]
